FAERS Safety Report 16411256 (Version 3)
Quarter: 2019Q4

REPORT INFORMATION
  Report Type: Report from Study
  Country: US (occurrence: US)
  Receive Date: 20190610
  Receipt Date: 20191025
  Transmission Date: 20200122
  Serious: Yes (Hospitalization)
  Sender: FDA-Public Use
  Company Number: US-EISAI MEDICAL RESEARCH-EC-2019-054656

PATIENT
  Age: 64 Year
  Sex: Male
  Weight: 96 kg

DRUGS (15)
  1. LENVIMA [Suspect]
     Active Substance: LENVATINIB
     Route: 048
     Dates: start: 201905, end: 20190610
  2. FLOMAX [Concomitant]
     Active Substance: TAMSULOSIN HYDROCHLORIDE
  3. FUROSEMIDE. [Concomitant]
     Active Substance: FUROSEMIDE
  4. ZOFRAN [Concomitant]
     Active Substance: ONDANSETRON HYDROCHLORIDE
  5. AMLODIPINE [Concomitant]
     Active Substance: AMLODIPINE BESYLATE
  6. TRAMADOL. [Concomitant]
     Active Substance: TRAMADOL
  7. LENVIMA [Suspect]
     Active Substance: LENVATINIB
     Indication: HEPATOCELLULAR CARCINOMA
     Route: 048
     Dates: start: 20190328, end: 201904
  8. SPIRONOLACTONE. [Concomitant]
     Active Substance: SPIRONOLACTONE
  9. VALSARTAN. [Concomitant]
     Active Substance: VALSARTAN
  10. PROMETHAZINE [Concomitant]
     Active Substance: PROMETHAZINE HYDROCHLORIDE
  11. LACTULOSE. [Concomitant]
     Active Substance: LACTULOSE
  12. POTASSIUM [Concomitant]
     Active Substance: POTASSIUM
  13. DIOVAN [Concomitant]
     Active Substance: VALSARTAN
  14. PROPRANOLOL HCL [Concomitant]
     Active Substance: PROPRANOLOL HYDROCHLORIDE
  15. LENVIMA [Suspect]
     Active Substance: LENVATINIB
     Route: 048
     Dates: start: 20190625, end: 20190923

REACTIONS (32)
  - Nausea [Recovered/Resolved]
  - Pain in extremity [Not Recovered/Not Resolved]
  - Vomiting [Unknown]
  - Decreased appetite [Recovering/Resolving]
  - Ammonia increased [Recovered/Resolved]
  - Hypertension [Recovered/Resolved]
  - Protein total decreased [Not Recovered/Not Resolved]
  - Hyperkeratosis [Not Recovered/Not Resolved]
  - Ascites [Not Recovered/Not Resolved]
  - Abdominal pain [Not Recovered/Not Resolved]
  - Heart rate decreased [Recovered/Resolved]
  - Pruritus [Recovering/Resolving]
  - Diarrhoea [Recovering/Resolving]
  - Malignant neoplasm progression [Unknown]
  - Confusional state [Recovered/Resolved]
  - Renal failure [Recovered/Resolved]
  - Peritonitis [Recovered/Resolved]
  - Pain [Unknown]
  - Oropharyngeal discomfort [Unknown]
  - Blood pressure decreased [Recovered/Resolved]
  - Dysphagia [Unknown]
  - Fatigue [Not Recovered/Not Resolved]
  - Tumour pain [Not Recovered/Not Resolved]
  - Blood potassium increased [Recovered/Resolved]
  - Abdominal distension [Unknown]
  - Platelet count decreased [Unknown]
  - Flatulence [Not Recovered/Not Resolved]
  - Oral mucosal blistering [Unknown]
  - Contusion [Not Recovered/Not Resolved]
  - Pruritus [Recovering/Resolving]
  - Gastric infection [Recovered/Resolved]
  - Insomnia [Not Recovered/Not Resolved]

NARRATIVE: CASE EVENT DATE: 2019
